FAERS Safety Report 6373358-4 (Version None)
Quarter: 2009Q3

REPORT INFORMATION
  Report Type: 
  Country: None (occurrence: None)
  Receive Date: 20090924
  Receipt Date: 20090413
  Transmission Date: 20100115
  Serious: No
  Sender: FDA-Public Use
  Company Number: US-ASTRAZENECA-2009UW09251

PATIENT
  Sex: Female
  Weight: 81.6 kg

DRUGS (6)
  1. SEROQUEL XR [Suspect]
     Route: 048
     Dates: start: 20090201
  2. XANAX [Concomitant]
  3. KLONOPIN [Concomitant]
  4. BENTYL [Concomitant]
  5. REMERON [Concomitant]
  6. AMBIEN [Concomitant]

REACTIONS (1)
  - LIBIDO DECREASED [None]
